FAERS Safety Report 18347510 (Version 1)
Quarter: 2020Q4

REPORT INFORMATION
  Report Type: Report from Study
  Country: DK (occurrence: DK)
  Receive Date: 20201006
  Receipt Date: 20201006
  Transmission Date: 20210114
  Serious: Yes (Hospitalization)
  Sender: FDA-Public Use
  Company Number: DK-SAMSUNG BIOEPIS-SB-2020-02039

PATIENT
  Age: 37 Year
  Sex: Male

DRUGS (2)
  1. IMRALDI [Suspect]
     Active Substance: ADALIMUMAB
     Indication: PSORIATIC ARTHROPATHY
     Dosage: STRENGTH: 40 MG.
     Route: 058
     Dates: start: 201901, end: 2019
  2. IMRALDI [Suspect]
     Active Substance: ADALIMUMAB
     Dosage: STRENGTH: 40 MG.
     Route: 058
     Dates: start: 201901, end: 2019

REACTIONS (3)
  - Product use issue [Unknown]
  - Paraesthesia [Not Recovered/Not Resolved]
  - Neck pain [Recovered/Resolved]

NARRATIVE: CASE EVENT DATE: 20190818
